FAERS Safety Report 9640423 (Version 1)
Quarter: 2013Q4

REPORT INFORMATION
  Report Type: Spontaneous
  Country: US (occurrence: US)
  Receive Date: 20131023
  Receipt Date: 20131023
  Transmission Date: 20140711
  Serious: Yes (Hospitalization)
  Sender: FDA-Public Use
  Company Number: US-NOVOPROD-389930

PATIENT
  Age: 16 Year
  Sex: Male

DRUGS (1)
  1. NORDITROPIN FLEXPRO 10 MG/ML [Suspect]
     Indication: GROWTH HORMONE DEFICIENCY
     Dosage: 2.4 MG PER DAY
     Dates: start: 20130612

REACTIONS (1)
  - Road traffic accident [Not Recovered/Not Resolved]
